FAERS Safety Report 20059053 (Version 1)
Quarter: 2021Q4

REPORT INFORMATION
  Report Type: Spontaneous
  Country: US (occurrence: None)
  Receive Date: 20211111
  Receipt Date: 20211111
  Transmission Date: 20220303
  Serious: Yes (Hospitalization)
  Sender: FDA-Public Use
  Company Number: None

PATIENT
  Age: 14 Year
  Sex: Male

DRUGS (1)
  1. PULMOZYME [Suspect]
     Active Substance: DORNASE ALFA
     Indication: Phosphorus metabolism disorder
     Dosage: OTHER QUANTITY : 2.5 MG/2.5ML;?FREQUENCY : TWICE A DAY;?
     Route: 055
     Dates: start: 20210922

REACTIONS (1)
  - Gastrointestinal tube insertion [None]

NARRATIVE: CASE EVENT DATE: 20211102
